FAERS Safety Report 24914320 (Version 2)
Quarter: 2025Q1

REPORT INFORMATION
  Report Type: Report from Study
  Country: CO (occurrence: CO)
  Receive Date: 20250203
  Receipt Date: 20250222
  Transmission Date: 20250408
  Serious: Yes (Other)
  Sender: ABBVIE
  Company Number: CO-ABBVIE-6113220

PATIENT
  Sex: Female
  Weight: 55 kg

DRUGS (1)
  1. RINVOQ [Suspect]
     Active Substance: UPADACITINIB
     Indication: Rheumatoid arthritis
     Route: 048
     Dates: start: 20240126, end: 20241230

REACTIONS (5)
  - Foot deformity [Unknown]
  - Asthenia [Unknown]
  - Polyarthritis [Unknown]
  - Finger deformity [Unknown]
  - Gait disturbance [Unknown]
